FAERS Safety Report 6419046-7 (Version None)
Quarter: 2009Q4

REPORT INFORMATION
  Report Type: 
  Country: None (occurrence: None)
  Receive Date: 20091029
  Receipt Date: 20090909
  Transmission Date: 20100525
  Serious: No
  Sender: FDA-Public Use
  Company Number: US-BAYER-200932369NA

PATIENT
  Age: 42 Year
  Sex: Female

DRUGS (3)
  1. MIRENA [Suspect]
     Indication: MENORRHAGIA
     Route: 015
     Dates: start: 20090402
  2. ALEVE [Concomitant]
  3. METFORMIN HCL [Concomitant]

REACTIONS (3)
  - DYSMENORRHOEA [None]
  - PAIN [None]
  - VAGINAL HAEMORRHAGE [None]
